FAERS Safety Report 8434767-2 (Version None)
Quarter: 2012Q2

REPORT INFORMATION
  Report Type: 
  Country: None (occurrence: None)
  Receive Date: 20120614
  Receipt Date: 20120604
  Transmission Date: 20120825
  Serious: Yes (Hospitalization, Other)
  Sender: FDA-Public Use
  Company Number: CN-JNJFOC-20120500830

PATIENT
  Age: 14 Year
  Sex: Male
  Weight: 50 kg

DRUGS (2)
  1. REMICADE [Suspect]
     Indication: ANKYLOSING SPONDYLITIS
     Route: 041
     Dates: start: 20120405, end: 20120405
  2. REMICADE [Suspect]
     Dosage: 100 MG VIAL
     Route: 041
     Dates: start: 20120322

REACTIONS (1)
  - BONE TUBERCULOSIS [None]
